FAERS Safety Report 9984794 (Version 1)
Quarter: 2014Q1

REPORT INFORMATION
  Report Type: Report from Study
  Country: US (occurrence: US)
  Receive Date: 20140307
  Receipt Date: 20140307
  Transmission Date: 20141002
  Serious: No
  Sender: FDA-Public Use
  Company Number: US-ABBVIE-13P-163-1182421-00

PATIENT
  Age: 80 Year
  Sex: Female
  Weight: 52.66 kg

DRUGS (5)
  1. HUMIRA [Suspect]
     Indication: RHEUMATOID ARTHRITIS
     Dosage: A COUPLE OF YEARS
     Dates: start: 2003
  2. REMICADE [Suspect]
     Indication: RHEUMATOID ARTHRITIS
     Dates: end: 201308
  3. PREDNISONE [Suspect]
     Indication: RHEUMATOID ARTHRITIS
  4. METHOTREXATE [Concomitant]
     Indication: RHEUMATOID ARTHRITIS
     Dates: end: 201206
  5. RESTASIS [Concomitant]
     Indication: DRY EYE

REACTIONS (2)
  - Drug ineffective [Unknown]
  - Arthralgia [Not Recovered/Not Resolved]
